FAERS Safety Report 8838535 (Version 1)
Quarter: 2012Q4

REPORT INFORMATION
  Report Type: 
  Country: US (occurrence: US)
  Receive Date: 20121012
  Receipt Date: 20121012
  Transmission Date: 20130627
  Serious: Yes (Other)
  Sender: FDA-Public Use
  Company Number: US-ELI_LILLY_AND_COMPANY-US201210001061

PATIENT
  Sex: Male

DRUGS (6)
  1. HUMALOG 25% LISPRO, 75% NPL [Suspect]
     Indication: DIABETES MELLITUS
     Dosage: 35 u, each morning
     Dates: start: 201209, end: 20121001
  2. HUMALOG 25% LISPRO, 75% NPL [Suspect]
     Dosage: 30 u, each evening
     Dates: start: 201209, end: 20121001
  3. HUMULIN 30% REGULAR, 70% NPH [Suspect]
     Indication: DIABETES MELLITUS
     Dosage: 35 u, each morning
     Dates: start: 1998, end: 201209
  4. HUMULIN 30% REGULAR, 70% NPH [Suspect]
     Dosage: 30 u, each evening
     Dates: start: 1998, end: 201209
  5. HUMULIN 30% REGULAR, 70% NPH [Suspect]
     Dosage: UNK
     Dates: start: 20121001
  6. GLIPIZIDE [Concomitant]

REACTIONS (9)
  - Blood pressure increased [Unknown]
  - Blood glucose increased [Unknown]
  - Drug ineffective [Recovered/Resolved]
  - Fatigue [Unknown]
  - Nervousness [Unknown]
  - Irritability [Unknown]
  - Lethargy [Unknown]
  - Feeling abnormal [Unknown]
  - Blood glucose increased [Unknown]
